FAERS Safety Report 8025017-X (Version None)
Quarter: 2012Q1

REPORT INFORMATION
  Report Type: 
  Country: None (occurrence: None)
  Receive Date: 20120105
  Receipt Date: 20120103
  Transmission Date: 20120608
  Serious: Yes (Hospitalization)
  Sender: FDA-Public Use
  Company Number: FR-ROCHE-1027269

PATIENT
  Age: 56 Year
  Sex: Male

DRUGS (11)
  1. KEPPRA [Concomitant]
  2. URBANYL [Concomitant]
  3. POTASSIUM CHLORIDE [Concomitant]
  4. AVASTIN [Suspect]
     Dates: end: 20101201
  5. VIMPAT [Concomitant]
  6. SIMVASTATIN [Concomitant]
  7. PREDNISOLONE [Concomitant]
  8. BELUSTINE [Suspect]
     Indication: BRAIN NEOPLASM
     Route: 048
     Dates: start: 20110502, end: 20110815
  9. CALCIUM CARBONATE [Concomitant]
  10. AVASTIN [Suspect]
     Indication: BRAIN NEOPLASM
     Route: 042
     Dates: start: 20101201, end: 20110901
  11. OMEPRAZOLE [Concomitant]

REACTIONS (1)
  - HEPATITIS ACUTE [None]
